FAERS Safety Report 21009614 (Version 3)
Quarter: 2022Q3

REPORT INFORMATION
  Report Type: Spontaneous
  Country: GB (occurrence: GB)
  Receive Date: 20220627
  Receipt Date: 20220726
  Transmission Date: 20221027
  Serious: Yes (Hospitalization)
  Sender: FDA-Public Use
  Company Number: GB-IGSA-BIG0019335

PATIENT
  Age: 68 Year
  Sex: Male

DRUGS (1)
  1. FLEBOGAMMA DIF [Suspect]
     Active Substance: HUMAN IMMUNOGLOBULIN G
     Indication: Plasma cell myeloma
     Dosage: UNK, Q.2WK.
     Route: 042
     Dates: start: 20220427, end: 20220427

REACTIONS (4)
  - Nasopharyngitis [Recovered/Resolved]
  - Sputum retention [Recovered/Resolved]
  - Bronchospasm [Recovered/Resolved]
  - Lower respiratory tract infection [Recovered/Resolved]

NARRATIVE: CASE EVENT DATE: 20220427
